FAERS Safety Report 5832326-9 (Version None)
Quarter: 2008Q3

REPORT INFORMATION
  Report Type: 
  Country: None (occurrence: None)
  Receive Date: 20080804
  Receipt Date: 20080724
  Transmission Date: 20090109
  Serious: Yes (Hospitalization)
  Sender: FDA-Public Use
  Company Number: B0530547A

PATIENT
  Age: 71 Year
  Sex: Female

DRUGS (2)
  1. PREDNISOLONE [Suspect]
     Dosage: 40MG PER DAY
     Route: 065
  2. CHLORAMBUCIL [Suspect]
     Dosage: 6MG PER DAY
     Route: 065

REACTIONS (7)
  - ANTI-HBS ANTIBODY POSITIVE [None]
  - BLOOD BILIRUBIN INCREASED [None]
  - HEPATITIS B [None]
  - HEPATITIS B DNA ASSAY POSITIVE [None]
  - JAUNDICE [None]
  - PROTHROMBIN TIME PROLONGED [None]
  - TRANSAMINASES INCREASED [None]
